FAERS Safety Report 9907592 (Version 2)
Quarter: 2014Q1

REPORT INFORMATION
  Report Type: Spontaneous
  Country: US (occurrence: US)
  Receive Date: 20140218
  Receipt Date: 20140321
  Transmission Date: 20141002
  Serious: Yes (Other)
  Sender: FDA-Public Use
  Company Number: US-AMGEN-USASP2014010655

PATIENT
  Age: 51 Year
  Sex: Female
  Weight: 51.25 kg

DRUGS (11)
  1. PROLIA [Suspect]
     Indication: OSTEOPOROSIS POSTMENOPAUSAL
     Dosage: 60 MG, Q6MO
     Route: 058
     Dates: start: 20120319, end: 20140129
  2. PROLIA [Suspect]
     Indication: SENILE OSTEOPOROSIS
  3. ADDERALL XR [Concomitant]
     Dosage: 30 MG, QD
  4. ZYPREXA [Concomitant]
     Dosage: 5 MG, QD
  5. GABAPENTIN [Concomitant]
  6. MACROBID                           /00024401/ [Concomitant]
     Indication: PROPHYLAXIS
     Dosage: 100 MG, QD
  7. ACYCLOVIR                          /00587301/ [Concomitant]
     Indication: PROPHYLAXIS
     Dosage: 400 MG, BID
  8. RELISTOR [Concomitant]
     Dosage: 1 ML, QOD
  9. XANAX [Concomitant]
     Dosage: 0.5 MG, AS NECESSARY
  10. VITAMIN D                          /00107901/ [Concomitant]
  11. CALCIUM [Concomitant]
     Indication: SUPPLEMENTATION THERAPY

REACTIONS (7)
  - Escherichia urinary tract infection [Unknown]
  - Adverse drug reaction [Unknown]
  - Throat irritation [Unknown]
  - Hot flush [Unknown]
  - Headache [Unknown]
  - Abdominal pain [Unknown]
  - Fatigue [Unknown]
